FAERS Safety Report 6420882-1 (Version None)
Quarter: 2009Q4

REPORT INFORMATION
  Report Type: 
  Country: None (occurrence: None)
  Receive Date: 20091030
  Receipt Date: 20091019
  Transmission Date: 20100525
  Serious: Yes (Other)
  Sender: FDA-Public Use
  Company Number: US-JNJCH-2009027580

PATIENT
  Age: 17 Year
  Sex: Male

DRUGS (7)
  1. DIPHENHYDRAMINE [Suspect]
     Indication: INSOMNIA
     Dosage: TEXT:UNSPECIFIED AT NIGHT AS NEEDED
     Route: 048
  2. VENLAFAXINE [Suspect]
     Indication: COGNITIVE DISORDER
     Dosage: TEXT:37.5 MG UNSPECIFIED
     Route: 048
  3. LAMOTRIGINE [Suspect]
     Indication: MIGRAINE
     Dosage: TEXT:UNSPECIFIED
     Route: 048
  4. ELETRIPTAN [Suspect]
     Indication: MIGRAINE
     Dosage: TEXT:UNSPECIFIED ONCE WEEKLY
     Route: 048
  5. TOPIRAMATE [Concomitant]
     Indication: MIGRAINE
     Dosage: TEXT:UNSPECIFIED
     Route: 065
  6. ACETAMINOPHEN AND HYDROCODONE BITARTRATE [Concomitant]
     Indication: MIGRAINE
     Dosage: TEXT:ONCE DAILY AS NEEDED
     Route: 048
  7. IBUPROFEN [Concomitant]
     Indication: MIGRAINE
     Dosage: TEXT:UNSPECIFIED
     Route: 048

REACTIONS (6)
  - ARNOLD-CHIARI MALFORMATION [None]
  - DISORIENTATION [None]
  - FORMICATION [None]
  - HALLUCINATION, VISUAL [None]
  - OFF LABEL USE [None]
  - PSYCHOTIC DISORDER [None]
